FAERS Safety Report 13322401 (Version 1)
Quarter: 2017Q1

REPORT INFORMATION
  Report Type: Spontaneous
  Country: US (occurrence: US)
  Receive Date: 20170309
  Receipt Date: 20170309
  Transmission Date: 20170428
  Serious: No
  Sender: FDA-Public Use
  Company Number: US-PFIZER INC-2017099514

PATIENT
  Age: 63 Year
  Sex: Female

DRUGS (1)
  1. SUTENT [Suspect]
     Active Substance: SUNITINIB MALATE
     Dosage: 37.5 MG, CYCLIC [DAILY FOR 28 DAYS THEN DO NOT TAKE FOR THE NEXT 14 DAYS THEN REPEAT]
     Route: 048
     Dates: start: 20170207

REACTIONS (1)
  - Vomiting [Unknown]
